FAERS Safety Report 4284841-X (Version None)
Quarter: 2004Q1

REPORT INFORMATION
  Report Type: 
  Country: None (occurrence: None)
  Receive Date: 20040204
  Receipt Date: 20030108
  Transmission Date: 20041129
  Serious: No
  Sender: FDA-Public Use
  Company Number: US-BRISTOL-MYERS SQUIBB COMPANY-12154159

PATIENT
  Age: 76 Year
  Sex: Male
  Weight: 73 kg

DRUGS (8)
  1. KENALOG [Suspect]
     Indication: PRURITUS
     Dosage: ^3 TO 4 TIME PER MONTH^
     Route: 061
  2. GLYBURIDE [Concomitant]
  3. ACTOS [Concomitant]
  4. ALTACE [Concomitant]
  5. TIMOPTIC DROPS [Concomitant]
  6. TRUSOPT [Concomitant]
  7. ASPIRIN [Concomitant]
  8. MULTI-VITAMIN [Concomitant]

REACTIONS (1)
  - DRUG INEFFECTIVE [None]
